FAERS Safety Report 16842987 (Version 3)
Quarter: 2021Q2

REPORT INFORMATION
  Report Type: Spontaneous
  Country: JP (occurrence: JP)
  Receive Date: 20190924
  Receipt Date: 20210519
  Transmission Date: 20210716
  Serious: Yes (Hospitalization, Other)
  Sender: FDA-Public Use
  Company Number: JP-009507513-1909JPN000994J

PATIENT
  Age: 66 Year
  Sex: Male
  Weight: 59 kg

DRUGS (3)
  1. CARBOPLATIN. [Concomitant]
     Active Substance: CARBOPLATIN
     Indication: NON-SMALL CELL LUNG CANCER STAGE I
     Dosage: 400 MILLIGRAM, Q3W
     Route: 041
     Dates: start: 20190903
  2. KEYTRUDA [Suspect]
     Active Substance: PEMBROLIZUMAB
     Indication: NON-SMALL CELL LUNG CANCER STAGE I
     Dosage: 200 MILLIGRAM, Q3W
     Route: 041
     Dates: start: 20190903, end: 20190903
  3. PEMETREXED DISODIUM [Concomitant]
     Active Substance: PEMETREXED DISODIUM
     Indication: NON-SMALL CELL LUNG CANCER STAGE I
     Dosage: 825 MILLIGRAM, Q3W
     Route: 041
     Dates: start: 20190903

REACTIONS (1)
  - Duodenal ulcer [Recovered/Resolved]

NARRATIVE: CASE EVENT DATE: 20190904
